FAERS Safety Report 16354411 (Version 2)
Quarter: 2019Q2

REPORT INFORMATION
  Report Type: Spontaneous
  Country: ES (occurrence: ES)
  Receive Date: 20190524
  Receipt Date: 20190611
  Transmission Date: 20190711
  Serious: Yes (Other)
  Sender: FDA-Public Use
  Company Number: ES-CELGENEUS-ESP-20190504979

PATIENT
  Age: 55 Year
  Sex: Female

DRUGS (3)
  1. OTEZLA [Suspect]
     Active Substance: APREMILAST
     Indication: PSORIASIS
     Dosage: FILM-COATED TABLETS, 27 TABLETS
     Route: 048
     Dates: start: 20180402
  2. OTEZLA [Suspect]
     Active Substance: APREMILAST
     Dosage: FILM-COATED TABLETS, 27 TABLETS
     Route: 048
  3. OTEZLA [Suspect]
     Active Substance: APREMILAST
     Dosage: FILM-COATED TABLETS, 27 TABLETS
     Route: 048
     Dates: end: 20180412

REACTIONS (1)
  - Chest pain [Recovered/Resolved]

NARRATIVE: CASE EVENT DATE: 20190412
